FAERS Safety Report 6258385-X (Version None)
Quarter: 2009Q3

REPORT INFORMATION
  Report Type: 
  Country: None (occurrence: None)
  Receive Date: 20090702
  Receipt Date: 20090702
  Transmission Date: 20100115
  Serious: Yes (Other)
  Sender: FDA-Public Use
  Company Number: None

PATIENT
  Age: 33 Year
  Sex: Male
  Weight: 56.5182 kg

DRUGS (1)
  1. SEROQUEL [Suspect]
     Indication: BIPOLAR DISORDER
     Dosage: 100 MG Q12HR PO
     Route: 048
     Dates: start: 20081101, end: 20090427

REACTIONS (3)
  - BLOOD PRESSURE SYSTOLIC DECREASED [None]
  - RESPIRATORY FAILURE [None]
  - SINUS TACHYCARDIA [None]
